FAERS Safety Report 21856955 (Version 1)
Quarter: 2023Q1

REPORT INFORMATION
  Report Type: Other
  Country: US (occurrence: None)
  Receive Date: 20230113
  Receipt Date: 20230113
  Transmission Date: 20230418
  Serious: Yes (Hospitalization)
  Sender: FDA-Public Use
  Company Number: US-ROCHE-3259171

PATIENT
  Age: 54 Year
  Sex: Male

DRUGS (2)
  1. OCREVUS [Suspect]
     Active Substance: OCRELIZUMAB
     Indication: Relapsing multiple sclerosis
     Dosage: 05/JAN/2023, 28/JUN/2022, 02/DEC/2021,16/DEC/2021
     Route: 042
     Dates: start: 202112
  2. AMPYRA [Concomitant]
     Active Substance: DALFAMPRIDINE

REACTIONS (7)
  - Haematological infection [Recovered/Resolved]
  - Cystitis [Recovered/Resolved]
  - Urinary tract infection [Recovered/Resolved]
  - Immunisation reaction [Not Recovered/Not Resolved]
  - Vein disorder [Not Recovered/Not Resolved]
  - Arthralgia [Not Recovered/Not Resolved]
  - Lymphoedema [Not Recovered/Not Resolved]

NARRATIVE: CASE EVENT DATE: 20220101
